FAERS Safety Report 22088655 (Version 2)
Quarter: 2025Q4

REPORT INFORMATION
  Report Type: Report from Study
  Country: US (occurrence: US)
  Receive Date: 20230313
  Receipt Date: 20251126
  Transmission Date: 20260117
  Serious: Yes (Other)
  Sender: TAKEDA
  Company Number: US-TAKEDA-2023TUS024923

PATIENT
  Age: 79 Year
  Sex: Female

DRUGS (15)
  1. PENTASA [Suspect]
     Active Substance: MESALAMINE
     Dosage: UNK
  2. VERZENIO [Concomitant]
     Active Substance: ABEMACICLIB
     Dosage: UNK
  3. ANASTROZOLE [Concomitant]
     Active Substance: ANASTROZOLE
  4. OMEPRAZOLE [Concomitant]
     Active Substance: OMEPRAZOLE
  5. PROAIR HFA [Concomitant]
     Active Substance: ALBUTEROL SULFATE
  6. TOBRADEX [Concomitant]
     Active Substance: DEXAMETHASONE\TOBRAMYCIN
  7. VITAMIN B12 [Concomitant]
     Active Substance: CYANOCOBALAMIN
  8. ZOFRAN [Concomitant]
     Active Substance: ONDANSETRON HYDROCHLORIDE
  9. NYSTATIN [Concomitant]
     Active Substance: NYSTATIN
  10. MONTELUKAST [Concomitant]
     Active Substance: MONTELUKAST
  11. LACTASE [Concomitant]
     Active Substance: LACTASE
  12. FLUTICASONE PROPIONATE [Concomitant]
     Active Substance: FLUTICASONE PROPIONATE
  13. CHOLESTYRAMINE [Concomitant]
     Active Substance: CHOLESTYRAMINE
  14. BREO ELLIPTA [Concomitant]
     Active Substance: FLUTICASONE FUROATE\VILANTEROL TRIFENATATE
  15. ASPIRIN [Concomitant]
     Active Substance: ASPIRIN

REACTIONS (2)
  - Neoplasm malignant [Unknown]
  - Diarrhoea [Unknown]
